FAERS Safety Report 6850285-7 (Version None)
Quarter: 2010Q3

REPORT INFORMATION
  Report Type: 
  Country: None (occurrence: None)
  Receive Date: 20100716
  Receipt Date: 20071014
  Transmission Date: 20110219
  Serious: No
  Sender: FDA-Public Use
  Company Number: US-PFIZER INC-2007087317

PATIENT
  Sex: Female
  Weight: 73.5 kg

DRUGS (12)
  1. CHANTIX [Suspect]
     Indication: SMOKING CESSATION THERAPY
     Route: 048
     Dates: start: 20071001
  2. BENICAR [Concomitant]
  3. TOPROL-XL [Concomitant]
  4. LASIX [Concomitant]
  5. POTASSIUM CHLORIDE [Concomitant]
  6. XANAX [Concomitant]
  7. TEMAZEPAM [Concomitant]
  8. ALPRAZOLAM [Concomitant]
  9. ZANTAC [Concomitant]
  10. ALBUTEROL [Concomitant]
     Indication: RESPIRATORY DISORDER
  11. IPRATROPIUM BROMIDE [Concomitant]
  12. SERTRALINE HCL [Concomitant]

REACTIONS (5)
  - CHILLS [None]
  - DISORIENTATION [None]
  - FATIGUE [None]
  - FEELING ABNORMAL [None]
  - NAUSEA [None]
